FAERS Safety Report 10633451 (Version 3)
Quarter: 2014Q4

REPORT INFORMATION
  Report Type: Spontaneous
  Country: US (occurrence: US)
  Receive Date: 20141205
  Receipt Date: 20141217
  Transmission Date: 20150529
  Serious: Yes (Other)
  Sender: FDA-Public Use
  Company Number: CHPA2014US016041

PATIENT
  Sex: Female

DRUGS (1)
  1. MAALOX ANTACID [Suspect]
     Active Substance: ALUMINUM HYDROXIDE\DIMETHICONE\MAGNESIUM HYDROXIDE
     Indication: GASTROOESOPHAGEAL REFLUX DISEASE
     Dosage: UNK, ONCE/SINGLE
     Route: 048
     Dates: start: 20141023, end: 20141023

REACTIONS (5)
  - Regurgitation [Recovered/Resolved]
  - Eating disorder [Unknown]
  - Chest discomfort [Recovered/Resolved]
  - Gastrointestinal oedema [Recovered/Resolved]
  - Dyspepsia [Unknown]

NARRATIVE: CASE EVENT DATE: 2014
